FAERS Safety Report 20087457 (Version 1)
Quarter: 2021Q4

REPORT INFORMATION
  Report Type: Report from Study
  Country: US (occurrence: US)
  Receive Date: 20211118
  Receipt Date: 20211118
  Transmission Date: 20220303
  Serious: Yes (Hospitalization)
  Sender: FDA-Public Use
  Company Number: US-PFIZER INC-202101529147

PATIENT
  Sex: Male

DRUGS (2)
  1. TALAZOPARIB [Suspect]
     Active Substance: TALAZOPARIB
     Dosage: 1 MG, 1X/DAY
     Route: 048
     Dates: start: 20210518
  2. AXITINIB [Suspect]
     Active Substance: AXITINIB
     Dosage: 5 MG, 2X/DAY(BID)
     Route: 048
     Dates: start: 20210518

REACTIONS (4)
  - Anaemia [Unknown]
  - Hyponatraemia [Recovered/Resolved]
  - Pyrexia [Unknown]
  - Haemoglobin decreased [Recovered/Resolved]

NARRATIVE: CASE EVENT DATE: 20211105
